FAERS Safety Report 5896005-4 (Version None)
Quarter: 2008Q3

REPORT INFORMATION
  Report Type: 
  Country: None (occurrence: None)
  Receive Date: 20080924
  Receipt Date: 20080905
  Transmission Date: 20090109
  Serious: Yes (Death)
  Sender: FDA-Public Use
  Company Number: JP-ABBOTT-08P-087-0473701-00

PATIENT
  Age: 78 Year
  Sex: Male

DRUGS (2)
  1. LEUPROLIDE ACETATE [Suspect]
     Indication: PROSTATE CANCER STAGE II
     Route: 058
     Dates: start: 20060804, end: 20080502
  2. BICALUTAMIDE [Concomitant]
     Indication: PROSTATE CANCER STAGE II
     Route: 048

REACTIONS (3)
  - CEREBRAL INFARCTION [None]
  - DYSPHAGIA [None]
  - PNEUMONIA [None]
